FAERS Safety Report 5904870-7 (Version None)
Quarter: 2008Q4

REPORT INFORMATION
  Report Type: 
  Country: None (occurrence: None)
  Receive Date: 20081001
  Receipt Date: 20080925
  Transmission Date: 20090506
  Serious: Yes (Other)
  Sender: FDA-Public Use
  Company Number: A0749319A

PATIENT
  Age: 77 Year
  Sex: Female

DRUGS (2)
  1. PAXIL [Suspect]
     Indication: DEPRESSION
     Dosage: 10MG PER DAY
     Route: 065
     Dates: end: 20080906
  2. CELEXA [Concomitant]
     Indication: DEPRESSION
     Route: 065
     Dates: start: 20080906

REACTIONS (2)
  - DELIRIUM [None]
  - WITHDRAWAL SYNDROME [None]
